FAERS Safety Report 10045289 (Version 2)
Quarter: 2014Q2

REPORT INFORMATION
  Report Type: Spontaneous
  Country: CA (occurrence: CA)
  Receive Date: 20140328
  Receipt Date: 20140520
  Transmission Date: 20141212
  Serious: Yes (Hospitalization)
  Sender: FDA-Public Use
  Company Number: CA-BRISTOL-MYERS SQUIBB COMPANY-20544409

PATIENT
  Sex: Female

DRUGS (11)
  1. ONGLYZA TABS [Suspect]
  2. WARFARIN SODIUM [Suspect]
  3. METFORMIN HCL [Suspect]
  4. TYLENOL [Concomitant]
     Dosage: GARGLE
  5. VITAMIN C [Concomitant]
  6. LIPITOR [Concomitant]
  7. LASIX [Concomitant]
  8. METOPROLOL [Concomitant]
  9. EPIVAL [Concomitant]
  10. PREVACID [Concomitant]
  11. LANTUS [Concomitant]

REACTIONS (2)
  - Infection [Unknown]
  - Dysphagia [Unknown]
